FAERS Safety Report 25464175 (Version 1)
Quarter: 2025Q2

REPORT INFORMATION
  Report Type: Spontaneous
  Country: JP (occurrence: JP)
  Receive Date: 20250621
  Receipt Date: 20250621
  Transmission Date: 20250717
  Serious: Yes (Hospitalization)
  Sender: ACCORD
  Company Number: JP-MLMSERVICE-20250603-PI524943-00213-2

PATIENT
  Age: 82 Year
  Sex: Female

DRUGS (11)
  1. QUETIAPINE [Suspect]
     Active Substance: QUETIAPINE
     Indication: Sleep disorder
     Dosage: BEFORE BEDTIME
  2. MEMANTINE [Suspect]
     Active Substance: MEMANTINE
     Indication: Dementia Alzheimer^s type
  3. RISPERIDONE [Suspect]
     Active Substance: RISPERIDONE
     Indication: Dementia Alzheimer^s type
  4. LEMBOREXANT [Concomitant]
     Active Substance: LEMBOREXANT
     Indication: Dementia Alzheimer^s type
  5. QUETIAPINE [Suspect]
     Active Substance: QUETIAPINE
     Indication: Sleep disorder
     Dosage: INCREASED, BEFORE BEDTIME
  6. QUETIAPINE [Suspect]
     Active Substance: QUETIAPINE
     Indication: Sleep disorder
     Dosage: ON DAY 55, DOSAGE WAS INCREASED
  7. QUETIAPINE [Suspect]
     Active Substance: QUETIAPINE
     Indication: Dementia Alzheimer^s type
     Dosage: BEFORE BEDTIME
  8. LEMBOREXANT [Concomitant]
     Active Substance: LEMBOREXANT
     Indication: Dementia Alzheimer^s type
  9. LEMBOREXANT [Concomitant]
     Active Substance: LEMBOREXANT
     Indication: Sleep disorder
  10. MEMANTINE [Suspect]
     Active Substance: MEMANTINE
     Indication: Dementia Alzheimer^s type
  11. QUETIAPINE [Suspect]
     Active Substance: QUETIAPINE
     Indication: Sleep disorder
     Dosage: INCREASED

REACTIONS (3)
  - Constipation [Unknown]
  - Renal impairment [Recovered/Resolved]
  - Hyperuricaemia [Recovered/Resolved]
